FAERS Safety Report 7533227-0 (Version None)
Quarter: 2011Q2

REPORT INFORMATION
  Report Type: 
  Country: None (occurrence: None)
  Receive Date: 20110608
  Receipt Date: 20091122
  Transmission Date: 20111010
  Serious: Yes (Other)
  Sender: FDA-Public Use
  Company Number: US-BAYER-200940352NA

PATIENT
  Age: 55 Year
  Sex: Male
  Weight: 86.168 kg

DRUGS (15)
  1. EPINEPHRINE [Concomitant]
     Dosage: TITRATED
     Route: 042
     Dates: start: 20070701
  2. NITROGLYCERIN [Concomitant]
     Dosage: 9 MG, UNK
     Route: 042
     Dates: start: 20070809
  3. NIPRIDE [Concomitant]
     Dosage: 50 UNK, UNK
     Route: 042
     Dates: start: 20090823
  4. HEPARIN [Concomitant]
     Dosage: 40,000 UNITS
     Route: 042
  5. SOLU-MEDROL [Concomitant]
     Dosage: 1 G, UNK
     Route: 042
     Dates: start: 20070809, end: 20070809
  6. NITROGLYCERIN [Concomitant]
     Dosage: TITRATED
     Route: 042
     Dates: start: 20070701
  7. TRASYLOL [Suspect]
     Indication: AORTIC ANEURYSM
     Dosage: 1 ML, UNK
     Route: 042
     Dates: start: 20070809, end: 20070810
  8. TRASYLOL [Suspect]
     Dosage: 200 ML CARDIOPULMONARY BYPASS PRIME
     Route: 042
     Dates: start: 20070809, end: 20070809
  9. CEFAZOLIN [Concomitant]
     Dosage: 1.5 G, UNK
     Route: 042
     Dates: start: 20070701
  10. PROTAMINE SULFATE [Concomitant]
     Dosage: 400 MG, UNK
     Route: 042
     Dates: start: 20070701
  11. HEPARIN [Concomitant]
     Dosage: 40040 U, UNK
     Route: 042
     Dates: start: 20070809
  12. NIPRIDE [Concomitant]
     Dosage: TITRATED
     Route: 042
     Dates: start: 20070701
  13. DOBUTAMINE HYDROCHLORIDE [Concomitant]
     Dosage: TITRATED
     Route: 042
     Dates: start: 20070701
  14. DOBUTAMINE HYDROCHLORIDE [Concomitant]
     Dosage: UNK
     Route: 042
     Dates: start: 20070809
  15. METHYLPREDNISOLONE [Concomitant]
     Dosage: 1 G, UNK
     Route: 042
     Dates: start: 20070701

REACTIONS (11)
  - RENAL FAILURE [None]
  - ANHEDONIA [None]
  - EMOTIONAL DISTRESS [None]
  - STRESS [None]
  - RENAL INJURY [None]
  - ANXIETY [None]
  - UNEVALUABLE EVENT [None]
  - FEAR [None]
  - PAIN [None]
  - INJURY [None]
  - RENAL IMPAIRMENT [None]
